FAERS Safety Report 9382415 (Version 2)
Quarter: 2013Q3

REPORT INFORMATION
  Report Type: Report from Study
  Country: FR (occurrence: FR)
  Receive Date: 20130703
  Receipt Date: 20130917
  Transmission Date: 20140515
  Serious: Yes (Death, Hospitalization)
  Sender: FDA-Public Use
  Company Number: FR-UCBSA-090340

PATIENT
  Age: 11 Month
  Sex: Female
  Weight: 7.9 kg

DRUGS (28)
  1. KEPPRA [Suspect]
     Indication: EPILEPSY
     Dosage: 200MG DAILY
     Route: 048
     Dates: start: 20130126, end: 20130211
  2. KEPPRA [Suspect]
     Indication: EPILEPSY
     Dosage: 400MG DAILY
     Route: 048
     Dates: start: 20121023, end: 20130125
  3. KEPPRA [Suspect]
     Indication: EPILEPSY
     Dosage: 300MG DAILY
     Route: 048
     Dates: start: 20121016, end: 20121022
  4. KEPPRA [Suspect]
     Indication: EPILEPSY
     Dosage: 200MG DAILY
     Route: 048
     Dates: start: 20121014, end: 20121015
  5. VIGABATRIN [Concomitant]
     Indication: EPILEPSY
     Dosage: FORM: 113
     Dates: start: 20120918, end: 20121105
  6. VIGABATRIN [Concomitant]
     Indication: EPILEPSY
     Dosage: FORM: 113
     Dates: start: 20121129
  7. CLONAZEPAM [Concomitant]
     Indication: EPILEPSY
     Dosage: FORM: 129
     Dates: start: 20121102, end: 20121106
  8. CLONAZEPAM [Concomitant]
     Indication: EPILEPSY
     Dosage: FORM: 129
     Dates: start: 20121107, end: 20121115
  9. CLONAZEPAM [Concomitant]
     Indication: EPILEPSY
     Dosage: FORM: 129
     Dates: start: 20121116, end: 20121119
  10. CLONAZEPAM [Concomitant]
     Indication: EPILEPSY
     Dosage: FORM: 129
     Dates: start: 20121120, end: 20130127
  11. CLONAZEPAM [Concomitant]
     Indication: EPILEPSY
     Dosage: FORM: 129
     Dates: start: 20130128
  12. PHENOBARBITAL [Concomitant]
     Indication: EPILEPSY
     Dosage: FORM:65
     Dates: start: 20121121, end: 2012
  13. PHENOBARBITAL [Concomitant]
     Indication: EPILEPSY
     Dosage: FORM: 129
     Dates: start: 20121204
  14. DIAZEPAM [Concomitant]
     Indication: EPILEPSY
     Dosage: FORM:136
     Dates: start: 20120927
  15. MIDAZOLAM [Concomitant]
     Indication: EPILEPSY
     Dosage: FORM: 136
     Dates: start: 20130208
  16. PHENYTOINE [Concomitant]
     Indication: EPILEPSY
     Dosage: FORM: 65
     Dates: start: 20121116, end: 20121128
  17. PHENYTOINE [Concomitant]
     Indication: EPILEPSY
     Dosage: FORM: 65
     Dates: start: 20121129
  18. CARBAMAZEPINE [Concomitant]
     Indication: EPILEPSY
     Dosage: FORM: 143
     Dates: start: 20130128, end: 20130208
  19. TOPIRAMATE [Concomitant]
     Indication: EPILEPSY
     Dosage: FORM: 10
     Dates: start: 20121029, end: 20121127
  20. TOPIRAMATE [Concomitant]
     Indication: EPILEPSY
     Dosage: FORM: 10
     Dates: start: 20121128
  21. GAVISCON [Concomitant]
     Indication: GASTROOESOPHAGEAL REFLUX DISEASE
     Dosage: FORM: 143
     Dates: start: 20121021
  22. PARACETAMOL [Concomitant]
     Indication: PAIN
     Dates: start: 20121021
  23. PARACETAMOL [Concomitant]
     Indication: GASTROOESOPHAGEAL REFLUX DISEASE
     Dates: start: 20121021
  24. FLIXOTIDE [Concomitant]
     Indication: ASTHMA
     Dosage: FORM: 131
     Dates: start: 20121106
  25. FORLAX [Concomitant]
     Indication: CONSTIPATION
     Dosage: FORM: 113
     Dates: start: 20121110
  26. AMOXYCILLIN [Concomitant]
     Indication: EAR INFECTION
     Dates: start: 20121211, end: 20121218
  27. INEXIUM [Concomitant]
     Indication: GASTROOESOPHAGEAL REFLUX DISEASE
     Dosage: FORM: 113
     Dates: start: 20130118
  28. DIOSMECTITE [Concomitant]
     Indication: DIARRHOEA
     Dosage: FORM: 113
     Dates: start: 20121215

REACTIONS (1)
  - Epilepsy [Fatal]
